FAERS Safety Report 21267977 (Version 1)
Quarter: 2022Q3

REPORT INFORMATION
  Report Type: Spontaneous
  Country: GB (occurrence: None)
  Receive Date: 20220829
  Receipt Date: 20220829
  Transmission Date: 20221026
  Serious: Yes (Hospitalization)
  Sender: FDA-Public Use
  Company Number: None

PATIENT
  Age: 80 Year
  Sex: Male
  Weight: 68 kg

DRUGS (4)
  1. ESBRIET [Suspect]
     Active Substance: PIRFENIDONE
     Indication: Pulmonary fibrosis
     Route: 065
     Dates: start: 20220408, end: 20220804
  2. PREDNISOLONE [Concomitant]
     Active Substance: PREDNISOLONE
     Dates: start: 2004
  3. CALCIUM CARBONATE\CHOLECALCIFEROL [Concomitant]
     Active Substance: CALCIUM CARBONATE\CHOLECALCIFEROL
     Dates: start: 2004
  4. WARFARIN [Concomitant]
     Active Substance: WARFARIN

REACTIONS (4)
  - International normalised ratio fluctuation [Recovered/Resolved]
  - Dyspnoea [Unknown]
  - Infection [Unknown]
  - Pulmonary embolism [Unknown]

NARRATIVE: CASE EVENT DATE: 20220801
